FAERS Safety Report 4793491-8 (Version None)
Quarter: 2005Q4

REPORT INFORMATION
  Report Type: 
  Country: None (occurrence: None)
  Receive Date: 20051011
  Receipt Date: 20051011
  Transmission Date: 20060501
  Serious: Yes (Hospitalization)
  Sender: FDA-Public Use
  Company Number: None

PATIENT
  Age: 23 Year
  Sex: Female
  Weight: 71.2147 kg

DRUGS (2)
  1. MIFEPRISTONE 200 MG ORAL [Suspect]
     Indication: ABORTION INDUCED
     Dosage: 200 MG ONCE ORALLY
     Route: 048
     Dates: start: 20050625
  2. MISOPROSTOL [Suspect]
     Indication: ABORTION INDUCED
     Dosage: 800 MCG ONCE VAGINALLY
     Route: 067
     Dates: start: 20050625

REACTIONS (4)
  - ABDOMINAL PAIN [None]
  - ABSCESS [None]
  - BACK PAIN [None]
  - SPINAL DISORDER [None]
